FAERS Safety Report 9571170 (Version 2)
Quarter: 2013Q4

REPORT INFORMATION
  Report Type: Report from Study
  Country: AU (occurrence: AU)
  Receive Date: 20131001
  Receipt Date: 20131010
  Transmission Date: 20140711
  Serious: Yes (Hospitalization)
  Sender: FDA-Public Use
  Company Number: PHHY2013AU108569

PATIENT
  Sex: Male

DRUGS (3)
  1. CLOZARIL [Suspect]
     Dosage: 12.5 MG, UNK
     Dates: start: 19930823
  2. CLOZARIL [Suspect]
     Dosage: UNK
  3. CLOZARIL [Suspect]
     Dosage: UNK

REACTIONS (2)
  - Psychotic disorder [Unknown]
  - Aggression [Unknown]
